FAERS Safety Report 14494800 (Version 3)
Quarter: 2019Q2

REPORT INFORMATION
  Report Type: Spontaneous
  Country: IT (occurrence: IT)
  Receive Date: 20180206
  Receipt Date: 20190510
  Transmission Date: 20190711
  Serious: Yes (Life-Threatening, Hospitalization, Other)
  Sender: FDA-Public Use
  Company Number: IT-MYLANLABS-2018M1007305

PATIENT
  Age: 44 Year
  Sex: Male

DRUGS (14)
  1. TAZOBACTAM [Suspect]
     Active Substance: TAZOBACTAM
     Indication: LUNG CONSOLIDATION
  2. PIPERACILLIN AND TAZOBACTAM [Suspect]
     Active Substance: PIPERACILLIN SODIUM\TAZOBACTAM SODIUM
     Indication: PROPHYLAXIS
     Dosage: 13.5 GRAM, QD
     Route: 042
  3. AMOXICILLIN/POTASSIUM CLAVULANATE [Suspect]
     Active Substance: AMOXICILLIN\CLAVULANATE POTASSIUM
     Indication: ASTHENIA
  4. CLARITHROMYCIN. [Suspect]
     Active Substance: CLARITHROMYCIN
     Dosage: 1 GRAM, QD
     Route: 048
  5. PIPERACILLIN AND TAZOBACTAM [Suspect]
     Active Substance: PIPERACILLIN SODIUM\TAZOBACTAM SODIUM
     Indication: LUNG CONSOLIDATION
     Dosage: 13.5 GRAM, QD
     Route: 042
  6. AMOXICILLIN/POTASSIUM CLAVULANATE [Suspect]
     Active Substance: AMOXICILLIN\CLAVULANATE POTASSIUM
     Indication: HEADACHE
     Dosage: UNK
     Route: 048
  7. RIFAMPICIN [Suspect]
     Active Substance: RIFAMPIN
     Indication: PNEUMONIA LEGIONELLA
     Dosage: 900 MG, QD
     Route: 065
  8. FLUCONAZOLE. [Suspect]
     Active Substance: FLUCONAZOLE
     Indication: PNEUMONIA LEGIONELLA
     Dosage: 800 MG, QD
     Route: 042
  9. PIPERACILLIN. [Concomitant]
     Active Substance: PIPERACILLIN SODIUM
     Indication: ANTIBIOTIC THERAPY
     Dosage: 13.5 G, QD
     Route: 042
  10. LEVOFLOXACIN. [Suspect]
     Active Substance: LEVOFLOXACIN
     Indication: PNEUMONIA LEGIONELLA
     Dosage: TEMPORARILY SUSPENDED ON DAY 17 OF HOSPITALISATION FOR BLOOD CULTURE SAMPLE WITHDRAWAL, AND RESUM...
     Route: 042
  11. TAZOBACTAM [Suspect]
     Active Substance: TAZOBACTAM
     Indication: ANTIBIOTIC THERAPY
     Dosage: 13.5 G, QD
     Route: 042
  12. LEVOFLOXACIN. [Suspect]
     Active Substance: LEVOFLOXACIN
     Dosage: 1500 MG, QD
     Route: 042
  13. AMOXICILLIN/POTASSIUM CLAVULANATE [Suspect]
     Active Substance: AMOXICILLIN\CLAVULANATE POTASSIUM
     Indication: HYPERPYREXIA
  14. CLARITHROMYCIN. [Suspect]
     Active Substance: CLARITHROMYCIN
     Indication: LUNG CONSOLIDATION
     Dosage: 1 MG, QD
     Route: 048

REACTIONS (19)
  - Acute respiratory distress syndrome [Recovered/Resolved]
  - Blood pH increased [Recovered/Resolved]
  - Eosinophil count increased [Recovered/Resolved]
  - PO2 decreased [Recovered/Resolved]
  - Drug ineffective [Unknown]
  - Muscle fatigue [Recovered/Resolved]
  - PCO2 decreased [Recovered/Resolved]
  - Condition aggravated [Recovered/Resolved]
  - Eosinophilia [Recovered/Resolved]
  - Pleural effusion [Recovered/Resolved]
  - Oxygen saturation decreased [Recovered/Resolved]
  - Respiratory distress [Recovered/Resolved]
  - Lymphocyte count decreased [Recovered/Resolved]
  - Eosinophilic pneumonia acute [Recovered/Resolved]
  - Lung consolidation [Recovered/Resolved]
  - CD4/CD8 ratio decreased [Recovered/Resolved]
  - Pneumothorax [Recovered/Resolved]
  - Neutrophil count decreased [Recovered/Resolved]
  - Pneumonia legionella [Recovered/Resolved]
